FAERS Safety Report 5069795-0 (Version None)
Quarter: 2006Q3

REPORT INFORMATION
  Report Type: 
  Country: None (occurrence: None)
  Receive Date: 20060731
  Receipt Date: 20060714
  Transmission Date: 20061208
  Serious: Yes (Hospitalization)
  Sender: FDA-Public Use
  Company Number: DEU-2006-0002358

PATIENT
  Age: 47 Year
  Sex: Female
  Weight: 51 kg

DRUGS (8)
  1. OXYCODONE HCL [Suspect]
     Indication: BACK PAIN
     Dosage: 10 MG, BID, ORAL
     Route: 048
     Dates: start: 20060314
  2. NEURONTIN [Concomitant]
  3. ACTIVELLE (NORETHISTERONE ACETATE) [Concomitant]
  4. METOPROLOL SUCCINATE [Concomitant]
  5. SULPIRIDE (SULPIRIDE) [Concomitant]
  6. KATADOLON (FLUPIRTINE MALEATE) [Concomitant]
  7. COPAXONE [Concomitant]
  8. ALPRAZOLAM [Concomitant]

REACTIONS (3)
  - HAEMATURIA [None]
  - THROMBOCYTOPENIA [None]
  - URGE INCONTINENCE [None]
